FAERS Safety Report 5468317-X (Version None)
Quarter: 2007Q3

REPORT INFORMATION
  Report Type: 
  Country: None (occurrence: None)
  Receive Date: 20070926
  Receipt Date: 20070921
  Transmission Date: 20080115
  Serious: Yes (Life-Threatening, Hospitalization, Other)
  Sender: FDA-Public Use
  Company Number: A0664885A

PATIENT
  Age: 48 Year
  Sex: Male
  Weight: 75 kg

DRUGS (5)
  1. AVANDIA [Suspect]
     Dosage: 2MG PER DAY
     Route: 048
     Dates: start: 20070421, end: 20070717
  2. REPAGLINIDE [Suspect]
     Dosage: 4MG THREE TIMES PER DAY
  3. ATORVASTATIN CALCIUM [Concomitant]
     Dosage: 20MG PER DAY
  4. RAMIPRIL [Concomitant]
     Dosage: 10MG PER DAY
  5. ASPIRIN [Concomitant]
     Dosage: 81MG PER DAY

REACTIONS (6)
  - ACUTE CORONARY SYNDROME [None]
  - ARTERIAL STENOSIS [None]
  - CHEST PAIN [None]
  - CORONARY ARTERY DISEASE [None]
  - ELECTROCARDIOGRAM ST SEGMENT ELEVATION [None]
  - HYPOKINESIA [None]
